FAERS Safety Report 22109347 (Version 1)
Quarter: 2023Q1

REPORT INFORMATION
  Report Type: Spontaneous
  Country: US (occurrence: None)
  Receive Date: 20230316
  Receipt Date: 20230316
  Transmission Date: 20230417
  Serious: No
  Sender: FDA-Public Use
  Company Number: None

PATIENT
  Age: 82 Year
  Sex: Female
  Weight: 54.39 kg

DRUGS (10)
  1. LORBRENA [Suspect]
     Active Substance: LORLATINIB
     Indication: Lung carcinoma cell type unspecified stage 0
     Dosage: FREQUENCY : DAILY;?
     Route: 048
  2. ADVIL [Concomitant]
  3. ALBUTEROL [Concomitant]
  4. ANAMU [Concomitant]
  5. CALCIUM [Concomitant]
  6. GABAPENTIN [Concomitant]
  7. GLUCOPHAGE [Concomitant]
  8. IBUPROFEN [Concomitant]
  9. LORATADINE [Concomitant]
  10. MYRBETRIQ [Concomitant]

REACTIONS (3)
  - Hypoaesthesia [None]
  - Hypoaesthesia [None]
  - Hypoaesthesia oral [None]
